FAERS Safety Report 21825196 (Version 1)
Quarter: 2023Q1

REPORT INFORMATION
  Report Type: Spontaneous
  Country: None (occurrence: GB)
  Receive Date: 20230105
  Receipt Date: 20230105
  Transmission Date: 20230418
  Serious: Yes (Death, Hospitalization)
  Sender: FDA-Public Use
  Company Number: GB-B.Braun Medical Inc.-2136467

PATIENT
  Age: 5 Year
  Sex: Male

DRUGS (16)
  1. CEFUROXIME SODIUM [Suspect]
     Active Substance: CEFUROXIME SODIUM
  2. GENTAMICIN [Suspect]
     Active Substance: GENTAMICIN
  3. PROPOFOL [Suspect]
     Active Substance: PROPOFOL
  4. FENTANYL [Suspect]
     Active Substance: FENTANYL
  5. PENICILLIN G [Suspect]
     Active Substance: PENICILLIN G
  6. CIPROFLOXACIN [Suspect]
     Active Substance: CIPROFLOXACIN
  7. AMOXICILLIN\CLAVULANATE POTASSIUM [Suspect]
     Active Substance: AMOXICILLIN\CLAVULANATE POTASSIUM
  8. DEXTROSE\POTASSIUM CHLORIDE\SODIUM CHLORIDE\SODIUM CITRATE [Suspect]
     Active Substance: DEXTROSE\POTASSIUM CHLORIDE\SODIUM CHLORIDE\SODIUM CITRATE
  9. M-M-RVAXPRO [Suspect]
     Active Substance: MEASLES VIRUS STRAIN ENDERS^ ATTENUATED EDMONSTON LIVE ANTIGEN\MUMPS VIRUS STRAIN B LEVEL JERYL LYNN
  10. UNSPECIFIED INGREDIENT [Suspect]
     Active Substance: UNSPECIFIED INGREDIENT
  11. PENICILLIN V [Suspect]
     Active Substance: PENICILLIN V
  12. PIPERACILLIN AND TAZOBACTAM [Suspect]
     Active Substance: PIPERACILLIN SODIUM\TAZOBACTAM SODIUM
  13. PULMOZYME [Suspect]
     Active Substance: DORNASE ALFA
  14. UNSPECIFIED INGREDIENT [Suspect]
     Active Substance: UNSPECIFIED INGREDIENT
  15. VENTOLIN [Suspect]
     Active Substance: ALBUTEROL SULFATE
  16. MEROPENEM [Suspect]
     Active Substance: MEROPENEM

REACTIONS (12)
  - Circulatory collapse [Fatal]
  - Intestinal ischaemia [Fatal]
  - Cerebral ischaemia [Fatal]
  - Motor dysfunction [Fatal]
  - Pneumococcal sepsis [Fatal]
  - Disease complication [Fatal]
  - Respiratory tract infection bacterial [Fatal]
  - Gastrointestinal disorder [Fatal]
  - Spinal muscular atrophy [Fatal]
  - Respiratory arrest [Fatal]
  - Condition aggravated [Fatal]
  - Atelectasis [Fatal]
